FAERS Safety Report 16711101 (Version 1)
Quarter: 2019Q4

REPORT INFORMATION
  Report Type: Spontaneous
  Country: US (occurrence: US)
  Receive Date: 20190816
  Receipt Date: 20190816
  Transmission Date: 20200122
  Serious: Yes (Other)
  Sender: FDA-Public Use
  Company Number: None

PATIENT
  Age: 64 Year
  Sex: Male

DRUGS (14)
  1. MORPHINE SUL TAB 60 MG ER [Concomitant]
  2. METHOTREXATE TAB 2.5 MG [Concomitant]
  3. PERCOCET TAB 5-325 MG [Concomitant]
  4. SIMPONI [Suspect]
     Active Substance: GOLIMUMAB
     Indication: PSORIATIC ARTHROPATHY
     Dosage: ?          OTHER FREQUENCY:EVERY 4 WEEKS;?
     Route: 058
     Dates: start: 20180627
  5. TAMSULOSIN CAP 0.4 MG [Concomitant]
  6. TEMAZEPAM CAP 30 MG [Concomitant]
  7. WARFARIN TAB 5 MG [Concomitant]
  8. ATORVASTATIN TAB 10 MG [Concomitant]
  9. CLONAZEPAM TAB 0.5 MG [Concomitant]
  10. MITROGLYCER DIS 0.4 MG [Concomitant]
  11. OXYCODONE TAB 30 MG [Concomitant]
  12. GABAPENTIN CAP 100 MG [Concomitant]
     Active Substance: GABAPENTIN
  13. LYRICA CAP 150 MG [Concomitant]
  14. FOLIC ACID TAB 1 MG [Concomitant]

REACTIONS (3)
  - Pruritus [None]
  - Knee operation [None]
  - Therapy cessation [None]

NARRATIVE: CASE EVENT DATE: 20190801
